FAERS Safety Report 12924760 (Version 1)
Quarter: 2016Q4

REPORT INFORMATION
  Report Type: Spontaneous
  Country: NL (occurrence: NL)
  Receive Date: 20161109
  Receipt Date: 20161109
  Transmission Date: 20170207
  Serious: Yes (Death, Other)
  Sender: FDA-Public Use
  Company Number: NL-ABBVIE-16P-114-1775292-00

PATIENT
  Age: 80 Year
  Weight: 72 kg

DRUGS (1)
  1. DUODOPA [Suspect]
     Active Substance: CARBIDOPA\LEVODOPA
     Indication: PARKINSONISM
     Dosage: UNKNOWN
     Route: 050
     Dates: start: 20160706

REACTIONS (4)
  - Dyskinesia [Fatal]
  - Infection [Unknown]
  - Fall [Fatal]
  - Pyrexia [Fatal]

NARRATIVE: CASE EVENT DATE: 20160906
